FAERS Safety Report 8889997 (Version 1)
Quarter: 2012Q4

REPORT INFORMATION
  Report Type: 
  Country: US (occurrence: US)
  Receive Date: 20121107
  Receipt Date: 20121107
  Transmission Date: 20130627
  Serious: Yes (Hospitalization)
  Sender: FDA-Public Use
  Company Number: PHEH2011US013253

PATIENT
  Sex: Male
  Weight: 85.3 kg

DRUGS (11)
  1. GILENYA [Suspect]
     Indication: RELAPSING-REMITTING MULTIPLE SCLEROSIS
     Dosage: 0.5 mg, QD
     Route: 048
     Dates: start: 20110817, end: 201111
  2. LAMICTAL [Concomitant]
     Indication: PAIN
     Dosage: 25 mg, BID
  3. AMANTADINE [Concomitant]
     Dosage: 100 mg, BID
  4. DIAZEPAM [Concomitant]
     Dosage: 5 mg, QHS
  5. AMITRIP [Concomitant]
     Dosage: 150 mg, QHS
  6. NASONEX [Concomitant]
     Dosage: UNK UKN, BID
  7. ALPRAZOLAM [Concomitant]
     Dosage: 0.25 mg, TID
  8. GEMFIBROZIL [Concomitant]
     Dosage: 600 mg, BID
  9. MELOXICAM [Concomitant]
  10. MAGNESIUM OXIDE [Concomitant]
     Dosage: 400 mg, BID
  11. PROTONIX [Concomitant]
     Dosage: 40 mg, daily

REACTIONS (5)
  - Encephalopathy [Recovered/Resolved]
  - Aphasia [Recovered/Resolved]
  - Chills [Recovered/Resolved]
  - Pyrexia [Recovered/Resolved]
  - Diarrhoea [Recovered/Resolved]
